FAERS Safety Report 17611019 (Version 3)
Quarter: 2020Q2

REPORT INFORMATION
  Report Type: Spontaneous
  Country: US (occurrence: US)
  Receive Date: 20200401
  Receipt Date: 20200624
  Transmission Date: 20200713
  Serious: Yes (Other)
  Sender: FDA-Public Use
  Company Number: US-VERTEX PHARMACEUTICALS-2020-007080

PATIENT
  Age: 37 Year
  Sex: Male

DRUGS (1)
  1. TRIKAFTA [Suspect]
     Active Substance: ELEXACAFTOR\IVACAFTOR\TEZACAFTOR
     Indication: CYSTIC FIBROSIS
     Dosage: 2 TABLETS (100 MG ELEXACAFTOR/ 50 MG TEZACAFTOR/ 75 MG IVACAFTOR) AM; 1 TABLET (150MG IVACAFTOR) PM
     Route: 048
     Dates: start: 20200320

REACTIONS (4)
  - Sputum increased [Recovered/Resolved]
  - Paranasal sinus hypersecretion [Unknown]
  - Pancreatitis acute [Recovered/Resolved]
  - Productive cough [Recovered/Resolved]

NARRATIVE: CASE EVENT DATE: 202003
